FAERS Safety Report 9397827 (Version 1)
Quarter: 2013Q3

REPORT INFORMATION
  Report Type: Spontaneous
  Country: US (occurrence: None)
  Receive Date: 20130711
  Receipt Date: 20130711
  Transmission Date: 20140515
  Serious: No
  Sender: FDA-Public Use
  Company Number: None

PATIENT
  Age: 41 Year
  Sex: Female
  Weight: 56.7 kg

DRUGS (2)
  1. HYDROCODONE AND ACETAMINOPHEN [Suspect]
  2. OXYCODONE AND ACETAMINOPHEN [Suspect]

REACTIONS (2)
  - Drug ineffective [None]
  - Product substitution issue [None]
